FAERS Safety Report 21882284 (Version 1)
Quarter: 2023Q1

REPORT INFORMATION
  Report Type: Spontaneous
  Country: US (occurrence: US)
  Receive Date: 20230119
  Receipt Date: 20230119
  Transmission Date: 20230418
  Serious: No
  Sender: FDA-Public Use
  Company Number: US-MACLEODS PHARMACEUTICALS US LTD-MAC2023039211

PATIENT

DRUGS (1)
  1. OLANZAPINE [Suspect]
     Active Substance: OLANZAPINE
     Indication: Product used for unknown indication
     Dosage: 4 DOSAGE FORM, QD (3 TABLETS IN MORNING AND 1 TABLET AT 3:00 PM) RX: 6347109, (NDC NUMBER: 33342-007
     Route: 048
     Dates: start: 20221226, end: 20230103

REACTIONS (6)
  - Hostility [Unknown]
  - Anger [Unknown]
  - Mood altered [Unknown]
  - Abnormal behaviour [Unknown]
  - Paranoia [Unknown]
  - Anxiety [Unknown]
